FAERS Safety Report 6645426-0 (Version None)
Quarter: 2010Q1

REPORT INFORMATION
  Report Type: 
  Country: None (occurrence: None)
  Receive Date: 20100322
  Receipt Date: 20100310
  Transmission Date: 20100710
  Serious: Yes (Hospitalization)
  Sender: FDA-Public Use
  Company Number: JP-BRISTOL-MYERS SQUIBB COMPANY-15018245

PATIENT
  Age: 54 Year
  Sex: Male
  Weight: 75 kg

DRUGS (1)
  1. MAXIPIME [Suspect]
     Indication: LEPTOSPIROSIS

REACTIONS (2)
  - PULMONARY HAEMORRHAGE [None]
  - SHOCK [None]
